FAERS Safety Report 18739221 (Version 3)
Quarter: 2021Q1

REPORT INFORMATION
  Report Type: Spontaneous
  Country: JP (occurrence: JP)
  Receive Date: 20210114
  Receipt Date: 20210310
  Transmission Date: 20210419
  Serious: Yes (Other)
  Sender: FDA-Public Use
  Company Number: JP-SA-2021SA007466

PATIENT
  Age: 80 Year
  Sex: Female

DRUGS (2)
  1. DOCETAXEL. [Suspect]
     Active Substance: DOCETAXEL
     Dosage: UNK UNK, QCY
     Route: 065
  2. DOCETAXEL. [Suspect]
     Active Substance: DOCETAXEL
     Indication: DISEASE PROGRESSION
     Dosage: UNK UNK, QCY
     Route: 065

REACTIONS (7)
  - Skin exfoliation [Recovered/Resolved]
  - Skin plaque [Recovered/Resolved]
  - Hyperkeratosis [Recovered/Resolved]
  - Psoriasis [Recovered/Resolved]
  - Neutrophilia [Recovered/Resolved]
  - Skin lesion [Recovered/Resolved]
  - Erythema [Recovered/Resolved]
